FAERS Safety Report 9667892 (Version 1)
Quarter: 2013Q4

REPORT INFORMATION
  Report Type: Spontaneous
  Country: US (occurrence: US)
  Receive Date: 20131104
  Receipt Date: 20131104
  Transmission Date: 20140711
  Serious: Yes (Life-Threatening, Other)
  Sender: FDA-Public Use
  Company Number: US-BRISTOL-MYERS SQUIBB COMPANY-19668920

PATIENT
  Age: 51 Year
  Sex: Male

DRUGS (1)
  1. BYETTA [Suspect]
     Indication: TYPE 2 DIABETES MELLITUS
     Dosage: THERAPY ON 2008-09
     Dates: start: 2006

REACTIONS (4)
  - Pancreatitis [Unknown]
  - Haemorrhage [Unknown]
  - Staphylococcal infection [Unknown]
  - Suicidal ideation [Unknown]
